FAERS Safety Report 5163468-1 (Version None)
Quarter: 2006Q4

REPORT INFORMATION
  Report Type: 
  Country: None (occurrence: None)
  Receive Date: 20061204
  Receipt Date: 20010201
  Transmission Date: 20070319
  Serious: Yes (Hospitalization)
  Sender: FDA-Public Use
  Company Number: 10700920

PATIENT
  Age: 24 Hour
  Sex: Male
  Weight: 3 kg

DRUGS (7)
  1. VIDEX [Suspect]
     Route: 064
  2. COMBIVIR [Suspect]
     Route: 064
  3. RETROVIR [Suspect]
     Route: 064
  4. IRON [Concomitant]
     Route: 064
  5. OROCAL [Concomitant]
     Route: 064
  6. MAXICAINE [Concomitant]
     Route: 064
  7. RHINATHIOL [Concomitant]
     Route: 064

REACTIONS (8)
  - ANAEMIA [None]
  - HEPATOMEGALY [None]
  - HYPERTONIA [None]
  - HYPOCALCAEMIA [None]
  - HYPOGLYCAEMIA [None]
  - LACTIC ACIDOSIS [None]
  - PREGNANCY [None]
  - SPLENOMEGALY [None]
